FAERS Safety Report 6720372-2 (Version None)
Quarter: 2010Q2

REPORT INFORMATION
  Report Type: 
  Country: None (occurrence: None)
  Receive Date: 20100511
  Receipt Date: 20100506
  Transmission Date: 20101027
  Serious: Yes (Hospitalization)
  Sender: FDA-Public Use
  Company Number: JP-EISAI INC.-E2020-04772-SPO-JP

PATIENT
  Age: 77 Year
  Sex: Female
  Weight: 38 kg

DRUGS (3)
  1. ARICEPT [Suspect]
     Indication: DEMENTIA WITH LEWY BODIES
     Route: 048
     Dates: start: 20070301, end: 20081001
  2. ARICEPT [Suspect]
     Route: 048
     Dates: start: 20090301, end: 20090101
  3. ARICEPT [Suspect]
     Route: 048
     Dates: start: 20090101, end: 20090401

REACTIONS (1)
  - TORTICOLLIS [None]
